FAERS Safety Report 23165736 (Version 2)
Quarter: 2025Q4

REPORT INFORMATION
  Report Type: Other
  Country: CA (occurrence: CA)
  Receive Date: 20231109
  Receipt Date: 20251201
  Transmission Date: 20260118
  Serious: Yes (Other)
  Sender: GLENMARK
  Company Number: CA-GLENMARK PHARMACEUTICALS-2023GMK086265

PATIENT

DRUGS (11)
  1. GABAPENTIN [Suspect]
     Active Substance: GABAPENTIN
     Indication: Drug use disorder
     Dosage: 1200 MILLIGRAM, 1 EVERY 1 DAYS
     Route: 065
  2. GABAPENTIN [Suspect]
     Active Substance: GABAPENTIN
     Dosage: 900 MILLIGRAM, 1 EVERY 1 DAYS
     Route: 065
  3. GABAPENTIN [Suspect]
     Active Substance: GABAPENTIN
     Dosage: 900 MILLIGRAM, 1 EVERY 1 DAYS
     Route: 065
  4. ACETAMINOPHEN\DEXTROMETHORPHAN\DOXYLAMINE\PSEUDOEPHEDRINE HYDROCHLORID [Suspect]
     Active Substance: ACETAMINOPHEN\DEXTROMETHORPHAN\DOXYLAMINE\PSEUDOEPHEDRINE HYDROCHLORIDE
     Indication: Insomnia
     Dosage: UNK
     Route: 065
  5. ACETAMINOPHEN\DEXTROMETHORPHAN\DOXYLAMINE\PSEUDOEPHEDRINE HYDROCHLORID [Suspect]
     Active Substance: ACETAMINOPHEN\DEXTROMETHORPHAN\DOXYLAMINE\PSEUDOEPHEDRINE HYDROCHLORIDE
     Indication: Anxiety
  6. MIRTAZAPINE [Concomitant]
     Active Substance: MIRTAZAPINE
     Indication: Depression
     Dosage: 30 MILLIGRAM, 1 EVERY 1 HOURS
     Route: 065
  7. NALTREXONE [Concomitant]
     Active Substance: NALTREXONE
     Indication: Drug use disorder
     Dosage: 25 MILLIGRAM, 1 EVERY 1 DAYS
     Route: 065
  8. NALTREXONE [Concomitant]
     Active Substance: NALTREXONE
     Dosage: 50 MILLIGRAM, 1 EVERY 1 DAYS
     Route: 065
  9. NALTREXONE [Concomitant]
     Active Substance: NALTREXONE
     Dosage: 100 MILLIGRAM, 1 EVERY 1 DAYS
     Route: 065
  10. Anethole;Dextromethorphan hydrobromide;Doxylamine succinate;Ephedrine [Concomitant]
     Indication: Insomnia
     Dosage: UNK
     Route: 065
  11. Anethole;Dextromethorphan hydrobromide;Doxylamine succinate;Ephedrine [Concomitant]
     Indication: Anxiety
     Dosage: UNK
     Route: 065

REACTIONS (6)
  - Rebound effect [Recovering/Resolving]
  - Sedation [Recovering/Resolving]
  - Intentional overdose [Unknown]
  - Off label use [Unknown]
  - Intentional product misuse [Unknown]
  - Product use in unapproved indication [Unknown]
